FAERS Safety Report 16161741 (Version 2)
Quarter: 2019Q2

REPORT INFORMATION
  Report Type: Spontaneous
  Country: US (occurrence: US)
  Receive Date: 20190405
  Receipt Date: 20190611
  Transmission Date: 20190711
  Serious: No
  Sender: FDA-Public Use
  Company Number: US-PFIZER INC-2019135722

PATIENT
  Sex: Female

DRUGS (3)
  1. CELEBREX [Interacting]
     Active Substance: CELECOXIB
     Indication: ARTHRITIS
  2. BIOTIN [Interacting]
     Active Substance: BIOTIN
     Indication: ALOPECIA
     Dosage: UNK
  3. CELEBREX [Suspect]
     Active Substance: CELECOXIB
     Indication: ARTHRALGIA
     Dosage: 100 MG, UNK

REACTIONS (1)
  - Drug interaction [Recovered/Resolved]
